FAERS Safety Report 8786286 (Version 2)
Quarter: 2012Q4

REPORT INFORMATION
  Report Type: 
  Country: US (occurrence: US)
  Receive Date: 20120914
  Receipt Date: 20121112
  Transmission Date: 20130627
  Serious: Yes (Death)
  Sender: FDA-Public Use
  Company Number: US-CELGENEUS-163-21880-12091104

PATIENT
  Sex: Male

DRUGS (7)
  1. REVLIMID [Suspect]
     Indication: MDS
     Dosage: 5 Milligram
     Route: 048
     Dates: start: 201204
  2. REVLIMID [Suspect]
     Dosage: 2.5mg dialysis days x 12
     Route: 048
     Dates: start: 201204, end: 201208
  3. NITROSTAT [Concomitant]
     Indication: CHEST PAIN
     Dosage: 4 Milligram
     Route: 065
  4. PLAVIX [Concomitant]
     Indication: CARDIOVASCULAR DISEASE, UNSPECIFIED
     Dosage: 75 Milligram
     Route: 065
  5. VENTOLIN [Concomitant]
     Indication: SHORTNESS OF BREATH
     Route: 055
  6. LIPITOR [Concomitant]
     Indication: HIGH CHOLESTEROL
     Dosage: 40 Milligram
     Route: 065
  7. MEGACE [Concomitant]
     Indication: APPETITE DISORDER
     Dosage: 40 Milligram
     Route: 065

REACTIONS (2)
  - Cardiovascular disorder [Fatal]
  - Renal failure chronic [Fatal]
